FAERS Safety Report 19568696 (Version 3)
Quarter: 2022Q1

REPORT INFORMATION
  Report Type: Spontaneous
  Country: US (occurrence: US)
  Receive Date: 20210715
  Receipt Date: 20220131
  Transmission Date: 20220423
  Serious: Yes (Disabling, Other)
  Sender: FDA-Public Use
  Company Number: US-PFIZER INC-2021832096

PATIENT
  Age: 60 Year
  Sex: Female

DRUGS (1)
  1. XELJANZ XR [Suspect]
     Active Substance: TOFACITINIB CITRATE
     Dosage: 11 MG

REACTIONS (7)
  - Systemic lupus erythematosus [Unknown]
  - Arthritis [Unknown]
  - Psoriatic arthropathy [Unknown]
  - COVID-19 [Unknown]
  - Pain [Unknown]
  - Frustration tolerance decreased [Unknown]
  - Infection [Unknown]
